FAERS Safety Report 10735224 (Version 1)
Quarter: 2015Q1

REPORT INFORMATION
  Report Type: Spontaneous
  Country: US (occurrence: US)
  Receive Date: 20150125
  Receipt Date: 20150125
  Transmission Date: 20150721
  Serious: Yes (Death, Other)
  Sender: FDA-Public Use
  Company Number: US-009507513-1501USA007539

PATIENT
  Age: 67 Year
  Sex: Female

DRUGS (2)
  1. ELAVIL [Suspect]
     Active Substance: AMITRIPTYLINE HYDROCHLORIDE
     Route: 048
  2. OXYCODONE [Suspect]
     Active Substance: OXYCODONE
     Dosage: UNK

REACTIONS (2)
  - Completed suicide [Fatal]
  - Toxicity to various agents [Fatal]
